FAERS Safety Report 7770695 (Version 4)
Quarter: 2014Q2

REPORT INFORMATION
  Report Type: Spontaneous
  Country: US (occurrence: US)
  Receive Date: 20110124
  Receipt Date: 20140528
  Transmission Date: 20141212
  Serious: Yes (Hospitalization)
  Sender: FDA-Public Use
  Company Number: US-BAYER-2011-006776

PATIENT
  Age: 44 Year
  Sex: Female
  Weight: 49.89 kg

DRUGS (4)
  1. YASMIN [Suspect]
     Indication: CONTRACEPTION
     Dosage: UNK
     Dates: start: 200602, end: 200604
  2. YASMIN [Suspect]
     Indication: ENDOMETRIOSIS
  3. ALEVE [Concomitant]
     Dosage: 2-3 DAYS PER MONTH DURING CYCLE
  4. ADVAIR [Concomitant]

REACTIONS (7)
  - Pulmonary embolism [None]
  - Emotional distress [None]
  - Anxiety [None]
  - Fear [None]
  - Injury [None]
  - Dyspnoea [None]
  - Back pain [None]
